FAERS Safety Report 4706665-9 (Version None)
Quarter: 2005Q2

REPORT INFORMATION
  Report Type: 
  Country: None (occurrence: None)
  Receive Date: 20050629
  Receipt Date: 20050328
  Transmission Date: 20051028
  Serious: No
  Sender: FDA-Public Use
  Company Number: 05P-163-0295352-00

PATIENT
  Age: 38 Year
  Sex: Female
  Weight: 97.5234 kg

DRUGS (7)
  1. HUMIRA [Suspect]
     Indication: RHEUMATOID ARTHRITIS
     Dosage: 40 MG, 1 IN 1 WK, SUBCUTANEOUS
     Route: 058
     Dates: start: 20040301
  2. AZATHIOPRINE [Concomitant]
  3. SINGULAIR [Concomitant]
  4. LORATADINE [Concomitant]
  5. LEVOTHYROXINE SODIUM [Concomitant]
  6. CYANOCOBALAMIN [Concomitant]
  7. HYDROCHLOROTHIAZIDE [Concomitant]

REACTIONS (3)
  - INJECTION SITE PRURITUS [None]
  - INJECTION SITE RASH [None]
  - INJECTION SITE URTICARIA [None]
